FAERS Safety Report 8210450-3 (Version None)
Quarter: 2012Q1

REPORT INFORMATION
  Report Type: 
  Country: None (occurrence: None)
  Receive Date: 20120314
  Receipt Date: 20111202
  Transmission Date: 20120608
  Serious: No
  Sender: FDA-Public Use
  Company Number: US-ASTRAZENECA-2011SE38341

PATIENT
  Age: 64 Year
  Sex: Male

DRUGS (3)
  1. DIURETIC [Concomitant]
  2. TOPROL-XL [Suspect]
     Route: 048
  3. ASPIRIN [Concomitant]

REACTIONS (5)
  - PYREXIA [None]
  - INFLUENZA [None]
  - COUGH [None]
  - PULMONARY CONGESTION [None]
  - LIGAMENT SPRAIN [None]
